FAERS Safety Report 4536604-5 (Version None)
Quarter: 2004Q4

REPORT INFORMATION
  Report Type: 
  Country: None (occurrence: None)
  Receive Date: 20041222
  Receipt Date: 20041222
  Transmission Date: 20050328
  Serious: Yes (Life-Threatening)
  Sender: FDA-Public Use
  Company Number: None

PATIENT
  Age: 46 Year
  Sex: Female
  Weight: 79.3795 kg

DRUGS (8)
  1. CELEBREX [Suspect]
     Indication: BACK PAIN
     Dosage: 400 MG BID OTHER
     Dates: start: 20000101, end: 20020918
  2. CELEBREX [Suspect]
     Indication: INTERVERTEBRAL DISC PROTRUSION
     Dosage: 400 MG BID OTHER
     Dates: start: 20000101, end: 20020918
  3. LIPITOR [Concomitant]
  4. DARVACET N [Concomitant]
  5. REMERON [Concomitant]
  6. KLONOPIN [Concomitant]
  7. BACLOFEN [Concomitant]
  8. TYLENOL [Concomitant]

REACTIONS (2)
  - CARDIOMYOPATHY [None]
  - CEREBROVASCULAR ACCIDENT [None]
